FAERS Safety Report 8830182 (Version 1)
Quarter: 2012Q4

REPORT INFORMATION
  Report Type: Spontaneous
  Country: US (occurrence: None)
  Receive Date: 20121009
  Receipt Date: 20121009
  Transmission Date: 20130627
  Serious: Yes (Other)
  Sender: FDA-Public Use
  Company Number: None

PATIENT
  Age: 77 Year
  Sex: Female
  Weight: 68.04 kg

DRUGS (2)
  1. DEPO-MEDROL [Suspect]
     Indication: SPINAL STENOSIS NOS
     Route: 008
     Dates: start: 20120630, end: 20120728
  2. DEPO-MEDROL [Suspect]
     Indication: PAIN MANAGEMENT
     Route: 008
     Dates: start: 20120630, end: 20120728

REACTIONS (7)
  - Abasia [None]
  - Impaired self-care [None]
  - Meningitis [None]
  - General physical health deterioration [None]
  - Fall [None]
  - Ataxia [None]
  - Confusional state [None]
